FAERS Safety Report 25379274 (Version 4)
Quarter: 2025Q4

REPORT INFORMATION
  Report Type: Spontaneous
  Country: JP (occurrence: JP)
  Receive Date: 20250530
  Receipt Date: 20251111
  Transmission Date: 20260117
  Serious: Yes (Death, Life-Threatening, Other)
  Sender: GENMAB
  Company Number: JP-GENMAB-2025-01383

PATIENT
  Age: 9 Decade
  Sex: Male

DRUGS (6)
  1. EPKINLY [Suspect]
     Active Substance: EPCORITAMAB-BYSP
     Indication: Diffuse large B-cell lymphoma refractory
     Dosage: 0.16 MILLIGRAM, SINGLE
     Route: 058
     Dates: start: 20250225, end: 20250225
  2. EPKINLY [Suspect]
     Active Substance: EPCORITAMAB-BYSP
     Dosage: 0.8 MILLIGRAM, SINGLE
     Route: 058
     Dates: start: 20250304, end: 20250304
  3. EPKINLY [Suspect]
     Active Substance: EPCORITAMAB-BYSP
     Dosage: 48 MILLIGRAM
     Route: 058
     Dates: start: 20250311, end: 20250523
  4. CORTICOTROPIN [Concomitant]
     Active Substance: CORTICOTROPIN
     Indication: Prophylaxis
     Dosage: UNK, ON DAY 1, DAY 2, DAY 3, AND DAY 4 OF ADMINISTRATION OF EPKINLY, FROM THE FIRST TO THE FOURTH AD
     Dates: start: 20250225, end: 202503
  5. VALTREX [Concomitant]
     Active Substance: VALACYCLOVIR HYDROCHLORIDE
     Indication: Herpes zoster
     Dosage: UNK, FOR HERPES ZOSTER
     Route: 048
  6. VALTREX [Concomitant]
     Active Substance: VALACYCLOVIR HYDROCHLORIDE
     Dosage: UNK, FOR HERPES ZOSTER (RELAPSE)
     Route: 048
     Dates: start: 20250402, end: 2025

REACTIONS (2)
  - Cytokine release syndrome [Fatal]
  - Herpes zoster reactivation [Not Recovered/Not Resolved]

NARRATIVE: CASE EVENT DATE: 20250402
